FAERS Safety Report 7539419-9 (Version None)
Quarter: 2011Q2

REPORT INFORMATION
  Report Type: 
  Country: None (occurrence: None)
  Receive Date: 20110609
  Receipt Date: 20110609
  Transmission Date: 20111010
  Serious: Yes (Other)
  Sender: FDA-Public Use
  Company Number: None

PATIENT
  Sex: Female

DRUGS (1)
  1. TYSABRI [Suspect]
     Dosage: 300 MG EVERY 4 WEEKS IV
     Route: 042
     Dates: start: 20110419, end: 20110518

REACTIONS (3)
  - ONYCHOCLASIS [None]
  - VERTIGO [None]
  - HEADACHE [None]
